FAERS Safety Report 21790533 (Version 1)
Quarter: 2022Q4

REPORT INFORMATION
  Report Type: Spontaneous
  Country: US (occurrence: US)
  Receive Date: 20221228
  Receipt Date: 20221228
  Transmission Date: 20230113
  Serious: No
  Sender: FDA-Public Use
  Company Number: US-FreseniusKabi-FK202218328

PATIENT
  Age: 4 Year
  Sex: Male
  Weight: 16.1 kg

DRUGS (4)
  1. DIPRIVAN [Suspect]
     Active Substance: PROPOFOL
     Indication: Sedative therapy
     Route: 040
     Dates: start: 20221220, end: 20221220
  2. DIPRIVAN [Suspect]
     Active Substance: PROPOFOL
     Route: 040
     Dates: start: 20221220, end: 20221220
  3. VERSED [Concomitant]
     Active Substance: MIDAZOLAM HYDROCHLORIDE
     Indication: Diagnostic procedure
     Dosage: GIVEN FIRST
     Dates: start: 20221220, end: 20221220
  4. FENTANYL [Concomitant]
     Active Substance: FENTANYL
     Indication: Diagnostic procedure
     Dosage: GIVEN SECOND
     Dates: start: 20221220, end: 20221220

REACTIONS (1)
  - Therapeutic product effect decreased [Recovered/Resolved]

NARRATIVE: CASE EVENT DATE: 20221220
